FAERS Safety Report 7996003-0 (Version None)
Quarter: 2011Q4

REPORT INFORMATION
  Report Type: 
  Country: None (occurrence: None)
  Receive Date: 20111220
  Receipt Date: 20111209
  Transmission Date: 20120403
  Serious: Yes (Hospitalization)
  Sender: FDA-Public Use
  Company Number: PHEH2011US011275

PATIENT
  Sex: Female
  Weight: 73.016 kg

DRUGS (1)
  1. TEKTURNA HCT [Suspect]
     Indication: HYPERTENSION
     Dosage: 1 DF, QD (300 MG/12.5 MG)
     Route: 048
     Dates: start: 20111121, end: 20111125

REACTIONS (1)
  - DIABETES MELLITUS INADEQUATE CONTROL [None]
